FAERS Safety Report 6838756-0 (Version None)
Quarter: 2010Q3

REPORT INFORMATION
  Report Type: 
  Country: None (occurrence: None)
  Receive Date: 20100713
  Receipt Date: 20070613
  Transmission Date: 20110219
  Serious: No
  Sender: FDA-Public Use
  Company Number: US-PFIZER INC-2007038091

PATIENT
  Sex: Female
  Weight: 55.34 kg

DRUGS (4)
  1. CHANTIX [Suspect]
     Indication: SMOKING CESSATION THERAPY
     Route: 048
     Dates: start: 20070507
  2. ESTROGENS ESTERIFIED [Concomitant]
     Indication: HORMONE REPLACEMENT THERAPY
  3. THEOPHYLLINE [Concomitant]
     Indication: ASTHMA
  4. IMITREX [Concomitant]
     Indication: MIGRAINE

REACTIONS (5)
  - ABDOMINAL DISCOMFORT [None]
  - DISSOCIATION [None]
  - DIZZINESS [None]
  - NAUSEA [None]
  - PRESYNCOPE [None]
